FAERS Safety Report 20442074 (Version 3)
Quarter: 2022Q4

REPORT INFORMATION
  Report Type: Spontaneous
  Country: JP (occurrence: JP)
  Receive Date: 20220208
  Receipt Date: 20221025
  Transmission Date: 20230113
  Serious: Yes (Other)
  Sender: FDA-Public Use
  Company Number: JP-BRISTOL-MYERS SQUIBB COMPANY-BMS-2022-018015

PATIENT
  Age: 83 Year

DRUGS (2)
  1. YERVOY [Suspect]
     Active Substance: IPILIMUMAB
     Indication: Non-small cell lung cancer recurrent
     Dosage: UNK, ONLY ONE CYCLE WAS ADMINISTERED
     Route: 041
  2. OPDIVO [Suspect]
     Active Substance: NIVOLUMAB
     Indication: Non-small cell lung cancer recurrent
     Dosage: UNK, ONLY ONE CYCLE WAS ADMINISTERED
     Route: 041

REACTIONS (2)
  - Nephrotic syndrome [Recovered/Resolved]
  - Pyrexia [Recovered/Resolved]
